FAERS Safety Report 23848372 (Version 2)
Quarter: 2024Q4

REPORT INFORMATION
  Report Type: Spontaneous
  Country: PL (occurrence: PL)
  Receive Date: 20240513
  Receipt Date: 20241128
  Transmission Date: 20250115
  Serious: Yes (Death, Hospitalization, Other)
  Sender: SANOFI AVENTIS
  Company Number: PL-SA-SAC20240511000194

PATIENT
  Age: 38 Year
  Sex: Female
  Weight: 45 kg

DRUGS (1)
  1. MYOZYME [Suspect]
     Active Substance: ALGLUCOSIDASE ALFA
     Indication: Glycogen storage disease type II
     Dosage: 20 MG/KG BW (18 VIALS) EVERY TWO WEEKS
     Route: 042
     Dates: start: 20060703, end: 20240421

REACTIONS (2)
  - Multiple organ dysfunction syndrome [Fatal]
  - Dysphagia [Unknown]

NARRATIVE: CASE EVENT DATE: 20240401
